FAERS Safety Report 10201903 (Version 1)
Quarter: 2014Q2

REPORT INFORMATION
  Report Type: Spontaneous
  Country: US (occurrence: US)
  Receive Date: 20140528
  Receipt Date: 20140528
  Transmission Date: 20141212
  Serious: No
  Sender: FDA-Public Use
  Company Number: US-PFIZER INC-2014143681

PATIENT
  Age: 49 Year
  Sex: Male
  Weight: 81.63 kg

DRUGS (2)
  1. VIAGRA [Suspect]
     Indication: ERECTILE DYSFUNCTION
     Dosage: 100 MG, AS NEEDED
  2. JANUMET [Concomitant]
     Indication: DIABETES MELLITUS
     Dosage: 500 MG, DAILY

REACTIONS (1)
  - Drug ineffective [Unknown]
